FAERS Safety Report 23105065 (Version 1)
Quarter: 2023Q4

REPORT INFORMATION
  Report Type: Spontaneous
  Country: US (occurrence: US)
  Receive Date: 20231025
  Receipt Date: 20231025
  Transmission Date: 20240110
  Serious: Yes (Hospitalization)
  Sender: FDA-Public Use
  Company Number: US-PPDUS-2023ST002738

PATIENT
  Age: 74 Year
  Sex: Female

DRUGS (1)
  1. ORSERDU [Suspect]
     Active Substance: ELACESTRANT
     Indication: Product used for unknown indication
     Route: 048
     Dates: start: 20230727

REACTIONS (9)
  - Dehydration [Unknown]
  - Neuralgia [Unknown]
  - Pain [Unknown]
  - COVID-19 [Unknown]
  - Illness [Unknown]
  - Product dose omission issue [Unknown]
  - Sensation of foreign body [Unknown]
  - Self-induced vomiting [Unknown]
  - Dyspepsia [Unknown]
